FAERS Safety Report 7617439-3 (Version None)
Quarter: 2011Q3

REPORT INFORMATION
  Report Type: 
  Country: None (occurrence: None)
  Receive Date: 20110718
  Receipt Date: 20110712
  Transmission Date: 20111222
  Serious: No
  Sender: FDA-Public Use
  Company Number: US-PFIZER INC-2011139310

PATIENT
  Sex: Male
  Weight: 80.726 kg

DRUGS (5)
  1. ARGININE [Concomitant]
     Dosage: UNK, 3 TABLETS A DAY
     Route: 048
  2. LIPITOR [Suspect]
     Indication: BLOOD CHOLESTEROL INCREASED
     Dosage: 10 MG, DAILY
     Route: 048
     Dates: start: 20040101, end: 20110614
  3. LISINOPRIL [Concomitant]
     Indication: BLOOD PRESSURE ABNORMAL
     Dosage: 20 MG, DAILY
  4. VITAMIN TAB [Concomitant]
     Dosage: UNK
  5. LIPITOR [Suspect]
     Dosage: UNK

REACTIONS (2)
  - LIVER FUNCTION TEST ABNORMAL [None]
  - ASPARTATE AMINOTRANSFERASE INCREASED [None]
